FAERS Safety Report 9062918 (Version 1)
Quarter: 2013Q1

REPORT INFORMATION
  Report Type: Spontaneous
  Country: CA (occurrence: CA)
  Receive Date: 20130213
  Receipt Date: 20130213
  Transmission Date: 20140127
  Serious: Yes (Other)
  Sender: FDA-Public Use
  Company Number: CA-BAYER-2013-017755

PATIENT
  Age: 16 Year
  Sex: Female

DRUGS (1)
  1. MIRENA [Suspect]
     Dosage: 20 MCG/24HR, CONT
     Route: 015
     Dates: start: 20130125

REACTIONS (6)
  - Urinary tract infection [None]
  - Abdominal pain [None]
  - Abdominal distension [None]
  - Pain in extremity [None]
  - Hypoaesthesia [None]
  - Oedema peripheral [None]
